FAERS Safety Report 12657579 (Version 4)
Quarter: 2016Q4

REPORT INFORMATION
  Report Type: Spontaneous
  Country: JP (occurrence: JP)
  Receive Date: 20160816
  Receipt Date: 20161221
  Transmission Date: 20170207
  Serious: Yes (Death, Hospitalization, Disabling, Other)
  Sender: FDA-Public Use
  Company Number: JP-ABBVIE-16P-087-1702557-00

PATIENT
  Age: 67 Year
  Sex: Male
  Weight: 69 kg

DRUGS (10)
  1. ROSUVASTATIN CALCIUM. [Concomitant]
     Active Substance: ROSUVASTATIN CALCIUM
     Indication: HYPERLIPIDAEMIA
     Route: 048
     Dates: start: 20150716, end: 20160808
  2. ESOMEPRAZOLE MAGNESIUM HYDRATE [Concomitant]
     Indication: ABDOMINAL PAIN UPPER
     Dosage: AFTER EVENING MEAL
     Route: 048
     Dates: start: 20160808, end: 20160810
  3. REBAMIPIDE [Concomitant]
     Active Substance: REBAMIPIDE
     Indication: CHRONIC GASTRITIS
     Route: 048
     Dates: start: 20130107, end: 20160808
  4. VIEKIRAX [Suspect]
     Active Substance: OMBITASVIR\PARITAPREVIR\RITONAVIR
     Indication: CHRONIC HEPATITIS C
     Route: 048
     Dates: start: 20160804, end: 20160808
  5. NIFEDIPINE. [Suspect]
     Active Substance: NIFEDIPINE
     Indication: HYPERTENSION
     Route: 048
     Dates: start: 20130107, end: 20160808
  6. IRBESARTAN. [Concomitant]
     Active Substance: IRBESARTAN
     Indication: HYPERTENSION
     Route: 048
     Dates: start: 20121203, end: 20160808
  7. DOXAZOSIN MESILATE [Concomitant]
     Active Substance: DOXAZOSIN MESYLATE
     Indication: HYPERTENSION
     Route: 048
     Dates: start: 20160428, end: 20160808
  8. ASPIRIN. [Concomitant]
     Active Substance: ASPIRIN
     Indication: RENAL IMPAIRMENT
     Route: 048
     Dates: start: 20130218, end: 20160808
  9. URSODEOXYCHOLIC ACID [Concomitant]
     Active Substance: URSODIOL
     Indication: CHRONIC HEPATITIS C
     Route: 048
     Dates: start: 20121220
  10. TORASEMIDE [Concomitant]
     Active Substance: TORSEMIDE
     Indication: OEDEMA PERIPHERAL
     Route: 048
     Dates: start: 20130722, end: 20160808

REACTIONS (5)
  - Multiple organ dysfunction syndrome [Fatal]
  - Intestinal obstruction [Not Recovered/Not Resolved]
  - Acute kidney injury [Not Recovered/Not Resolved]
  - Necrotising oesophagitis [Not Recovered/Not Resolved]
  - Pneumonia aspiration [Fatal]

NARRATIVE: CASE EVENT DATE: 20160808
